FAERS Safety Report 8192926-0 (Version None)
Quarter: 2012Q1

REPORT INFORMATION
  Report Type: 
  Country: None (occurrence: None)
  Receive Date: 20120308
  Receipt Date: 20120301
  Transmission Date: 20120608
  Serious: Yes (Life-Threatening)
  Sender: FDA-Public Use
  Company Number: CH-BRISTOL-MYERS SQUIBB COMPANY-16429862

PATIENT
  Age: 74 Year
  Sex: Male

DRUGS (7)
  1. METFORMIN HYDROCHLORIDE [Concomitant]
     Indication: TYPE 2 DIABETES MELLITUS
     Route: 048
  2. TRAMADOL HCL [Concomitant]
     Indication: ARTHRALGIA
     Dosage: TABLET
     Route: 048
     Dates: start: 20111231
  3. IRBESARTAN AND HYDROCHLOROTHIAZIDE [Suspect]
     Indication: ESSENTIAL HYPERTENSION
     Route: 048
     Dates: start: 20111201
  4. AMOXICILLIN + CLAVULANATE POTASSIUM [Suspect]
     Indication: BRONCHITIS
     Route: 048
     Dates: start: 20111231
  5. VOLTAREN [Suspect]
     Indication: ARTHRALGIA
     Dosage: COATED TABLETS, DRAGEES
     Route: 048
     Dates: start: 20111231
  6. DIAMICRON [Suspect]
     Indication: TYPE 2 DIABETES MELLITUS
     Route: 048
  7. STARLIX [Suspect]
     Indication: TYPE 2 DIABETES MELLITUS
     Route: 048

REACTIONS (4)
  - HYPOGLYCAEMIC COMA [None]
  - HAEMATURIA [None]
  - RENAL FAILURE ACUTE [None]
  - METABOLIC ACIDOSIS [None]
